FAERS Safety Report 4695250-3 (Version None)
Quarter: 2005Q2

REPORT INFORMATION
  Report Type: 
  Country: None (occurrence: None)
  Receive Date: 20050612
  Receipt Date: 20050324
  Transmission Date: 20051028
  Serious: No
  Sender: FDA-Public Use
  Company Number: 2005-00614

PATIENT
  Sex: Male

DRUGS (1)
  1. VELCADE [Suspect]
     Indication: MEDICATION ERROR
     Dosage: 1.90 MG, SINGLE, INTRAMUSCULAR
     Route: 030
     Dates: start: 20050324, end: 20050324

REACTIONS (1)
  - MEDICATION ERROR [None]
